FAERS Safety Report 19083765 (Version 2)
Quarter: 2021Q2

REPORT INFORMATION
  Report Type: Spontaneous
  Country: HU (occurrence: HU)
  Receive Date: 20210401
  Receipt Date: 20210523
  Transmission Date: 20210717
  Serious: Yes (Other)
  Sender: FDA-Public Use
  Company Number: NVSC2021HU066804

PATIENT
  Age: 70 Year
  Sex: Male

DRUGS (4)
  1. DABRAFENIB [Suspect]
     Active Substance: DABRAFENIB
     Indication: METASTATIC MALIGNANT MELANOMA
     Dosage: UNK
     Route: 048
     Dates: start: 201912, end: 202011
  2. TRAMETINIB [Suspect]
     Active Substance: TRAMETINIB
     Indication: METASTATIC MALIGNANT MELANOMA
     Dosage: UNK
     Route: 048
     Dates: start: 201912, end: 2020
  3. TRAMETINIB [Suspect]
     Active Substance: TRAMETINIB
     Indication: ADJUVANT THERAPY
     Dosage: UNK
     Route: 048
     Dates: start: 2020, end: 202011
  4. DABRAFENIB [Suspect]
     Active Substance: DABRAFENIB
     Indication: ADJUVANT THERAPY

REACTIONS (2)
  - Subretinal fluid [Recovered/Resolved]
  - Pyrexia [Recovered/Resolved]

NARRATIVE: CASE EVENT DATE: 202001
